FAERS Safety Report 12613877 (Version 1)
Quarter: 2016Q3

REPORT INFORMATION
  Report Type: Spontaneous
  Country: US (occurrence: None)
  Receive Date: 20160801
  Receipt Date: 20160801
  Transmission Date: 20161109
  Serious: Yes (Other)
  Sender: FDA-Public Use
  Company Number: None

PATIENT
  Age: 4 Year
  Sex: Male
  Weight: 21.77 kg

DRUGS (2)
  1. GUANFACINE HCL ER 1MG?GUANFACINE HCL ER 1MG?GUANFACINE HCL ER 1MG [Suspect]
     Active Substance: GUANFACINE HYDROCHLORIDE
     Indication: ATTENTION DEFICIT/HYPERACTIVITY DISORDER
     Dosage: 1 TAB QPM DAILY ORAL
     Route: 048
     Dates: start: 20160523
  2. GUANFACINE HCL ER 2MG ACTAVIS PHARMA [Suspect]
     Active Substance: GUANFACINE HYDROCHLORIDE
     Indication: ATTENTION DEFICIT/HYPERACTIVITY DISORDER
     Dosage: 1 TAB QAM DAILY ORAL
     Route: 048
     Dates: start: 20160428

REACTIONS (4)
  - Psychomotor hyperactivity [None]
  - Impulsive behaviour [None]
  - Disturbance in attention [None]
  - Aggression [None]

NARRATIVE: CASE EVENT DATE: 20160428
